FAERS Safety Report 4933538-9 (Version None)
Quarter: 2006Q1

REPORT INFORMATION
  Report Type: 
  Country: None (occurrence: None)
  Receive Date: 20060111
  Receipt Date: 20050422
  Transmission Date: 20060701
  Serious: Yes (Hospitalization)
  Sender: FDA-Public Use
  Company Number: A001-002-006468

PATIENT
  Age: 79 Year
  Sex: Male
  Weight: 100 kg

DRUGS (7)
  1. ARICEPT [Suspect]
     Indication: DEMENTIA ALZHEIMER'S TYPE
     Dosage: 5 MG, 1 IN 1 D, ORAL
     Route: 048
  2. GLUCOPHAGE [Concomitant]
  3. DETROL [Concomitant]
  4. PROSCAR [Concomitant]
  5. DIURETIC (DIURETICS) [Concomitant]
  6. ANTI-HYPERTENSIVE [Concomitant]
  7. ZOLOFT [Concomitant]

REACTIONS (1)
  - CARDIAC FAILURE CONGESTIVE [None]
